FAERS Safety Report 10945606 (Version 1)
Quarter: 2015Q1

REPORT INFORMATION
  Report Type: Spontaneous
  Country: GB (occurrence: None)
  Receive Date: 20150319
  Receipt Date: 20150319
  Transmission Date: 20150721
  Serious: Yes (Other)
  Sender: FDA-Public Use
  Company Number: 2015093268

PATIENT
  Age: 62 Year
  Sex: Male
  Weight: 97.98 kg

DRUGS (7)
  1. PARACETAMOL [Concomitant]
     Active Substance: ACETAMINOPHEN
  2. LOPERAMIDE [Concomitant]
     Active Substance: LOPERAMIDE
  3. GLUCOPHAGE-SLOW RELEASE (METFORMIN HYDROCHLORIDE) [Concomitant]
  4. SIMVASTATIN. [Concomitant]
     Active Substance: SIMVASTATIN
  5. FORTISIP (CARBOHYDRATES NOS, FATS NOS, MINERALS NOS, PROTEIN, VITAMINS NOS) [Concomitant]
  6. DALTEPARIN SODIUM (DALTEPARIN SODIUM) UNKNOWN [Suspect]
     Active Substance: DALTEPARIN SODIUM
     Dosage: 7,500 UNITS/0.3ML ONCE DAILY, SUBCUTANEOUS
     Route: 058
  7. DIHYDROCODEINE [Concomitant]
     Active Substance: DIHYDROCODEINE

REACTIONS (1)
  - Hyperkalaemia [None]

NARRATIVE: CASE EVENT DATE: 20150126
